FAERS Safety Report 12137887 (Version 1)
Quarter: 2016Q1

REPORT INFORMATION
  Report Type: Spontaneous
  Country: US (occurrence: US)
  Receive Date: 20160302
  Receipt Date: 20160302
  Transmission Date: 20160526
  Serious: Yes (Other)
  Sender: FDA-Public Use
  Company Number: US-LPDUSPRD-20160182

PATIENT
  Age: 36 Year
  Sex: Female

DRUGS (1)
  1. INJECTAFER [Suspect]
     Active Substance: FERRIC CARBOXYMALTOSE
     Dosage: DOSE NOT PROVIDED
     Route: 065

REACTIONS (5)
  - Nausea [Unknown]
  - Pruritus [Unknown]
  - Urticaria [Unknown]
  - Malaise [Unknown]
  - Discomfort [Unknown]
